FAERS Safety Report 18962911 (Version 1)
Quarter: 2021Q1

REPORT INFORMATION
  Report Type: Spontaneous
  Country: AU (occurrence: AU)
  Receive Date: 20210303
  Receipt Date: 20210303
  Transmission Date: 20210420
  Serious: Yes (Life-Threatening, Hospitalization)
  Sender: FDA-Public Use
  Company Number: AU-MYLANLABS-2021M1012680

PATIENT
  Age: 40 Year
  Sex: Female

DRUGS (20)
  1. AZITHROMYCIN ANHYDROUS. [Suspect]
     Active Substance: AZITHROMYCIN ANHYDROUS
     Indication: BACILLUS INFECTION
  2. VITAMIN K [Concomitant]
     Active Substance: PHYTONADIONE
     Indication: BACILLUS INFECTION
     Dosage: UNK
     Route: 065
  3. METRONIDAZOLE. [Suspect]
     Active Substance: METRONIDAZOLE
     Indication: FOOD POISONING
     Dosage: 500 MILLIGRAM, BID
     Route: 042
  4. MEROPENEM. [Suspect]
     Active Substance: MEROPENEM
     Indication: FOOD POISONING
  5. MAGNESIUM [Suspect]
     Active Substance: MAGNESIUM
     Indication: VENTRICULAR TACHYCARDIA
     Dosage: UNK
     Route: 042
  6. FRESH FORZEN PLASMA [Concomitant]
     Indication: FOOD POISONING
  7. N?ACETYLCYSTEINE [Concomitant]
     Active Substance: ACETYLCYSTEINE
     Indication: BACILLUS INFECTION
     Dosage: UNK
  8. AMIODARONE [Concomitant]
     Active Substance: AMIODARONE
     Indication: ATRIAL FIBRILLATION
     Dosage: UNK
     Route: 065
  9. VANCOMYCIN [Suspect]
     Active Substance: VANCOMYCIN
     Indication: FOOD POISONING
  10. PIPERACILLIN/TAZOBACTAM [Suspect]
     Active Substance: PIPERACILLIN SODIUM\TAZOBACTAM SODIUM
     Indication: BACILLUS INFECTION
     Dosage: UNK
     Route: 042
  11. NOREPINEPHRINE. [Suspect]
     Active Substance: NOREPINEPHRINE
     Indication: SHOCK
     Dosage: UNK
  12. N?ACETYLCYSTEINE [Concomitant]
     Active Substance: ACETYLCYSTEINE
     Indication: FOOD POISONING
  13. METRONIDAZOLE. [Suspect]
     Active Substance: METRONIDAZOLE
     Indication: BACILLUS INFECTION
     Dosage: UNK
     Route: 042
  14. PIPERACILLIN/TAZOBACTAM [Suspect]
     Active Substance: PIPERACILLIN SODIUM\TAZOBACTAM SODIUM
     Indication: FOOD POISONING
  15. METARAMINOL [Suspect]
     Active Substance: METARAMINOL
     Indication: HYPOTENSION
     Dosage: UNK
     Route: 065
  16. MEROPENEM. [Suspect]
     Active Substance: MEROPENEM
     Indication: BACILLUS INFECTION
     Dosage: 2 GRAM, Q8H
     Route: 042
  17. FRESH FORZEN PLASMA [Concomitant]
     Indication: BACILLUS INFECTION
     Dosage: UNK
     Route: 065
  18. VANCOMYCIN [Suspect]
     Active Substance: VANCOMYCIN
     Indication: BACILLUS INFECTION
     Dosage: 2 GRAM, QD, CONTINUOUS...
     Route: 042
  19. AZITHROMYCIN ANHYDROUS. [Suspect]
     Active Substance: AZITHROMYCIN ANHYDROUS
     Indication: FOOD POISONING
     Dosage: UNK
     Route: 042
  20. VITAMIN K [Concomitant]
     Active Substance: PHYTONADIONE
     Indication: FOOD POISONING

REACTIONS (1)
  - Drug ineffective [Unknown]
